FAERS Safety Report 5728165-X (Version None)
Quarter: 2008Q2

REPORT INFORMATION
  Report Type: 
  Country: None (occurrence: None)
  Receive Date: 20080430
  Receipt Date: 20080424
  Transmission Date: 20081010
  Serious: Yes (Life-Threatening, Hospitalization)
  Sender: FDA-Public Use
  Company Number: CLOF-1000057

PATIENT
  Age: 69 Year
  Sex: Female
  Weight: 66.4 kg

DRUGS (4)
  1. CLOLAR [Suspect]
     Indication: BONE MARROW CONDITIONING REGIMEN
     Dosage: 76 MG, QD, INTRAVENOUS
     Route: 042
     Dates: start: 20071114, end: 20071117
  2. CAMPATH [Suspect]
     Indication: BONE MARROW CONDITIONING REGIMEN
     Dosage: 20 MG, QD, INTRAVENOUS
     Route: 042
     Dates: start: 20071114, end: 20071117
  3. DILANTIN KAPSEAL [Concomitant]
  4. MELPHALAN (MELPHALAN) [Suspect]
     Indication: BONE MARROW CONDITIONING REGIMEN
     Dosage: 266 MG, ONCE, INTRAVENOUS
     Route: 042
     Dates: start: 20071126, end: 20071126

REACTIONS (18)
  - AGITATION [None]
  - BLOOD CREATININE INCREASED [None]
  - BLOOD POTASSIUM DECREASED [None]
  - CARBON DIOXIDE DECREASED [None]
  - CARDIAC FAILURE CONGESTIVE [None]
  - CARDIOMEGALY [None]
  - DIARRHOEA [None]
  - DISORIENTATION [None]
  - DRUG LEVEL DECREASED [None]
  - HALLUCINATIONS, MIXED [None]
  - HYPOVOLAEMIA [None]
  - INFUSION RELATED REACTION [None]
  - ISCHAEMIA [None]
  - METABOLIC ENCEPHALOPATHY [None]
  - NAUSEA [None]
  - PNEUMOCYSTIS JIROVECI PNEUMONIA [None]
  - PNEUMONIA [None]
  - VOMITING [None]
